FAERS Safety Report 9128118 (Version 4)
Quarter: 2013Q3

REPORT INFORMATION
  Report Type: Report from Study
  Country: JP (occurrence: JP)
  Receive Date: 20130228
  Receipt Date: 20130809
  Transmission Date: 20140515
  Serious: Yes (Other)
  Sender: FDA-Public Use
  Company Number: JP-JNJFOC-20130214661

PATIENT
  Age: 60 Year
  Sex: Male
  Weight: 69 kg

DRUGS (15)
  1. SIMPONI [Suspect]
     Indication: RHEUMATOID ARTHRITIS
     Route: 058
     Dates: start: 20121012
  2. SIMPONI [Suspect]
     Indication: RHEUMATOID ARTHRITIS
     Route: 058
     Dates: start: 20120817
  3. SIMPONI [Suspect]
     Indication: RHEUMATOID ARTHRITIS
     Route: 058
     Dates: start: 20120615
  4. SIMPONI [Suspect]
     Indication: RHEUMATOID ARTHRITIS
     Route: 058
     Dates: start: 20120713
  5. SIMPONI [Suspect]
     Indication: RHEUMATOID ARTHRITIS
     Route: 058
     Dates: start: 20120914
  6. SIMPONI [Suspect]
     Indication: RHEUMATOID ARTHRITIS
     Route: 058
     Dates: start: 20121109
  7. SIMPONI [Suspect]
     Indication: RHEUMATOID ARTHRITIS
     Route: 058
     Dates: start: 20120518
  8. ISCOTIN [Suspect]
     Indication: PROPHYLAXIS
     Route: 065
     Dates: start: 20120616, end: 20130305
  9. ISCOTIN [Suspect]
     Indication: PROPHYLAXIS
     Route: 065
     Dates: start: 20120518, end: 20120615
  10. ISCOTIN [Suspect]
     Indication: PROPHYLAXIS
     Route: 065
     Dates: start: 20120302
  11. RHEUMATREX [Concomitant]
     Indication: RHEUMATOID ARTHRITIS
     Route: 048
     Dates: start: 20120414
  12. RHEUMATREX [Concomitant]
     Indication: RHEUMATOID ARTHRITIS
     Route: 048
     Dates: start: 20120309, end: 20120407
  13. LORFENAMIN [Concomitant]
     Indication: RHEUMATOID ARTHRITIS
     Route: 048
     Dates: start: 20120302, end: 20120615
  14. FOLIAMIN [Concomitant]
     Indication: PROPHYLAXIS
     Route: 065
     Dates: start: 20120302
  15. PREDONINE [Concomitant]
     Indication: RHEUMATOID ARTHRITIS
     Route: 048
     Dates: start: 20120810, end: 20130205

REACTIONS (3)
  - Crystal arthropathy [Recovered/Resolved]
  - Rash erythematous [Recovered/Resolved]
  - Alanine aminotransferase increased [Recovering/Resolving]
